FAERS Safety Report 5680516-0 (Version None)
Quarter: 2008Q1

REPORT INFORMATION
  Report Type: 
  Country: None (occurrence: None)
  Receive Date: 20080326
  Receipt Date: 20080326
  Transmission Date: 20080703
  Serious: No
  Sender: FDA-Public Use
  Company Number: None

PATIENT
  Age: 82 Year
  Sex: Male

DRUGS (11)
  1. HEPARIN [Suspect]
     Indication: DEEP VEIN THROMBOSIS
     Dosage: VAR. IV INFUSION
     Route: 042
     Dates: start: 20071221, end: 20071224
  2. ATORVASTATIN CALCIUM [Concomitant]
  3. CARVEDILOL [Concomitant]
  4. DOCUSATE [Concomitant]
  5. ETHACRYNIC ACID [Concomitant]
  6. FOLIC ACID [Concomitant]
  7. INSULIN [Concomitant]
  8. TAMSULOSIN HCL [Concomitant]
  9. AMIODARONE HCL [Concomitant]
  10. ASPIRIN [Concomitant]
  11. LYRICA [Concomitant]

REACTIONS (1)
  - HEPARIN-INDUCED THROMBOCYTOPENIA [None]
